FAERS Safety Report 8209778-2 (Version None)
Quarter: 2012Q1

REPORT INFORMATION
  Report Type: 
  Country: None (occurrence: None)
  Receive Date: 20120314
  Receipt Date: 20120305
  Transmission Date: 20120608
  Serious: Yes (Hospitalization)
  Sender: FDA-Public Use
  Company Number: FR-ASTRAZENECA-2012SE16308

PATIENT
  Age: 13356 Day
  Sex: Female

DRUGS (2)
  1. NEXIUM [Suspect]
     Dosage: DAILY
     Route: 048
     Dates: start: 20120101, end: 20120201
  2. KETOPROFEN [Suspect]
     Dosage: DAILY
     Route: 048
     Dates: start: 20120101, end: 20120201

REACTIONS (1)
  - ACUTE GENERALISED EXANTHEMATOUS PUSTULOSIS [None]
